FAERS Safety Report 6258170-9 (Version None)
Quarter: 2009Q3

REPORT INFORMATION
  Report Type: 
  Country: None (occurrence: None)
  Receive Date: 20090702
  Receipt Date: 20090702
  Transmission Date: 20100115
  Serious: Yes (Hospitalization)
  Sender: FDA-Public Use
  Company Number: None

PATIENT
  Age: 76 Year
  Sex: Female
  Weight: 73.9363 kg

DRUGS (2)
  1. PLAVIX [Suspect]
  2. PROTONIX [Suspect]

REACTIONS (2)
  - GASTRIC DISORDER [None]
  - TRANSIENT ISCHAEMIC ATTACK [None]
